FAERS Safety Report 5744156-7 (Version None)
Quarter: 2008Q2

REPORT INFORMATION
  Report Type: 
  Country: None (occurrence: None)
  Receive Date: 20080520
  Receipt Date: 20080514
  Transmission Date: 20081010
  Serious: Yes (Other)
  Sender: FDA-Public Use
  Company Number: BR-JNJFOC-20080503221

PATIENT
  Age: 57 Year
  Sex: Male
  Weight: 65 kg

DRUGS (5)
  1. HALDOL [Suspect]
     Indication: MENTAL DISORDER
     Route: 048
  2. HALDOL [Suspect]
     Indication: ABSTAINS FROM ALCOHOL
     Route: 048
  3. DIAZEPAM [Concomitant]
     Indication: SLEEP DISORDER THERAPY
  4. CAPTOPRIL [Concomitant]
     Indication: HYPERTENSION
  5. AMLODIPINE [Concomitant]
     Indication: HYPERTENSION

REACTIONS (3)
  - AGITATION [None]
  - DISTRACTIBILITY [None]
  - INSOMNIA [None]
